FAERS Safety Report 8334335-7 (Version None)
Quarter: 2012Q2

REPORT INFORMATION
  Report Type: 
  Country: None (occurrence: None)
  Receive Date: 20120503
  Receipt Date: 20120425
  Transmission Date: 20120825
  Serious: Yes (Other)
  Sender: FDA-Public Use
  Company Number: DE-ROCHE-1062858

PATIENT
  Sex: Female
  Weight: 63 kg

DRUGS (9)
  1. CARBOPLATIN [Suspect]
     Indication: BREAST CANCER
     Dosage: LAST DOSE PRIOR TO SAE: 17/APR/2012
     Route: 042
     Dates: start: 20120327
  2. PACLITAXEL [Suspect]
     Indication: BREAST CANCER
     Dosage: LAST DOSE PRIOR TO SAE: 17/APR/2012
     Route: 042
     Dates: start: 20120327
  3. HERCEPTIN [Suspect]
     Dosage: LAST DOSE PRIOR TO SAE: 17/APR/2012. MAINTENANCE DOSE.
     Route: 042
     Dates: start: 20120417
  4. DOXORUBICIN HCL [Suspect]
     Indication: BREAST CANCER
     Dosage: LAST DOSE PRIOR TO SAE: 17/APR/2012
     Route: 042
     Dates: start: 20120327
  5. LAPATINIB [Suspect]
     Indication: BREAST CANCER
     Dosage: LAST DOSE PRIOR TO SAE: 17/APR/2012
     Route: 048
     Dates: start: 20120327
  6. GRANISETRON [Concomitant]
     Dates: start: 20120317
  7. FENISTIL (GERMANY) [Concomitant]
     Dates: start: 20120317
  8. LOPERAMIDE [Concomitant]
     Dates: start: 20120317
  9. HERCEPTIN [Suspect]
     Indication: BREAST CANCER
     Dosage: LOADING DOSE AS PER PROTOCOL
     Route: 042
     Dates: start: 20120327, end: 20120327

REACTIONS (1)
  - EMBOLISM [None]
